FAERS Safety Report 5590678-1 (Version None)
Quarter: 2008Q1

REPORT INFORMATION
  Report Type: 
  Country: None (occurrence: None)
  Receive Date: 20080114
  Receipt Date: 20071231
  Transmission Date: 20080703
  Serious: Yes (Hospitalization)
  Sender: FDA-Public Use
  Company Number: US-PFIZER INC-2008001079

PATIENT
  Sex: Female
  Weight: 53.1 kg

DRUGS (3)
  1. CHANTIX [Suspect]
     Indication: SMOKING CESSATION THERAPY
     Dates: start: 20070913, end: 20070919
  2. LEXAPRO [Concomitant]
  3. ALPRAZOLAM [Concomitant]

REACTIONS (7)
  - ABASIA [None]
  - AMNESIA [None]
  - CEREBROVASCULAR ACCIDENT [None]
  - CONVULSION [None]
  - HYPERSENSITIVITY [None]
  - MUTISM [None]
  - THINKING ABNORMAL [None]
